FAERS Safety Report 18375638 (Version 7)
Quarter: 2021Q3

REPORT INFORMATION
  Report Type: Report from Study
  Country: JP (occurrence: JP)
  Receive Date: 20201013
  Receipt Date: 20210914
  Transmission Date: 20211014
  Serious: Yes (Hospitalization)
  Sender: FDA-Public Use
  Company Number: NVSJ2020JP009909

PATIENT
  Age: 61 Year
  Sex: Male
  Weight: 67.4 kg

DRUGS (5)
  1. ILARIS [Suspect]
     Active Substance: CANAKINUMAB
     Dosage: 150 MG
     Route: 058
     Dates: start: 20200821
  2. CICLOSPORIN [Concomitant]
     Active Substance: CYCLOSPORINE
     Indication: FAMILIAL MEDITERRANEAN FEVER
     Route: 048
  3. AZANIN [Concomitant]
     Active Substance: AZATHIOPRINE
     Indication: FAMILIAL MEDITERRANEAN FEVER
     Route: 048
  4. ILARIS [Suspect]
     Active Substance: CANAKINUMAB
     Indication: FAMILIAL MEDITERRANEAN FEVER
     Dosage: 150 MG
     Route: 058
     Dates: start: 20200720
  5. ILARIS [Suspect]
     Active Substance: CANAKINUMAB
     Dosage: 300 MG
     Route: 058
     Dates: start: 20200923, end: 20200923

REACTIONS (3)
  - Melaena [Recovered/Resolved]
  - Concomitant disease aggravated [Recovered/Resolved]
  - Small intestine ulcer [Recovering/Resolving]

NARRATIVE: CASE EVENT DATE: 20200814
